FAERS Safety Report 8606364-7 (Version None)
Quarter: 2012Q3

REPORT INFORMATION
  Report Type: 
  Country: None (occurrence: None)
  Receive Date: 20120820
  Receipt Date: 20120816
  Transmission Date: 20120928
  Serious: Yes (Disabling, Other)
  Sender: FDA-Public Use
  Company Number: AU-ROCHE-1102968

PATIENT
  Sex: Male

DRUGS (1)
  1. LARIAM [Suspect]
     Indication: PRODUCT USED FOR UNKNOWN INDICATION

REACTIONS (2)
  - HEADACHE [None]
  - SOMNOLENCE [None]
